FAERS Safety Report 8007067-2 (Version None)
Quarter: 2011Q4

REPORT INFORMATION
  Report Type: 
  Country: None (occurrence: None)
  Receive Date: 20111123
  Receipt Date: 20110912
  Transmission Date: 20120403
  Serious: No
  Sender: FDA-Public Use
  Company Number: 331005

PATIENT
  Age: 53 Year
  Sex: Female

DRUGS (3)
  1. NOVOLOG (INSULIN ASPART) SOLUTION FOR INJECTION, 100 U/ML ONGOING [Concomitant]
  2. LANTUS /01483501/ (INSULIN GLARGINE) ONGOING [Concomitant]
  3. VICTOZA [Suspect]
     Indication: TYPE 1 DIABETES MELLITUS
     Dosage: 1.2 MG, QD, SUBCUTANEOUS
     Route: 058
     Dates: start: 20110601

REACTIONS (1)
  - DECREASED APPETITE [None]
